FAERS Safety Report 9197936 (Version 1)
Quarter: 2013Q1

REPORT INFORMATION
  Report Type: Spontaneous
  Country: US (occurrence: US)
  Receive Date: 20130328
  Receipt Date: 20130328
  Transmission Date: 20140127
  Serious: Yes (Other)
  Sender: FDA-Public Use
  Company Number: US-BAYER-2013-036019

PATIENT
  Age: 33 Year
  Sex: Male
  Weight: 86 kg

DRUGS (2)
  1. BAYER GENUINE ASPIRIN ORIGINAL STRENGTH [Suspect]
     Indication: SEASONAL ALLERGY
     Dosage: 2 DF, ONCE
     Route: 048
     Dates: start: 197703, end: 197703
  2. HEY FEVER MEDICINE [Concomitant]

REACTIONS (2)
  - Gastric haemorrhage [Recovered/Resolved]
  - Off label use [None]
